FAERS Safety Report 9704276 (Version 1)
Quarter: 2013Q4

REPORT INFORMATION
  Report Type: Spontaneous
  Country: US (occurrence: US)
  Receive Date: 20131122
  Receipt Date: 20131122
  Transmission Date: 20140711
  Serious: No
  Sender: FDA-Public Use
  Company Number: US-009507513-1310USA009801

PATIENT
  Age: 63 Year
  Sex: Female

DRUGS (3)
  1. ZIOPTAN [Suspect]
     Indication: GLAUCOMA
     Dosage: 2 GTT, HS, 1 DROP EACH EYE
     Dates: start: 201309, end: 20131020
  2. RESTASIS [Concomitant]
  3. OASIS TEARS [Concomitant]

REACTIONS (1)
  - Eye pain [Not Recovered/Not Resolved]
